FAERS Safety Report 4748851-8 (Version None)
Quarter: 2005Q3

REPORT INFORMATION
  Report Type: 
  Country: None (occurrence: None)
  Receive Date: 20050819
  Receipt Date: 20050805
  Transmission Date: 20060218
  Serious: Yes (Hospitalization)
  Sender: FDA-Public Use
  Company Number: US-GLAXOSMITHKLINE-A0569133A

PATIENT
  Age: 53 Year
  Sex: Female

DRUGS (9)
  1. IMITREX [Suspect]
     Indication: MIGRAINE
     Dosage: 1INJ AS REQUIRED
     Route: 058
     Dates: start: 19990101
  2. PROTONIX [Concomitant]
  3. THYROID TAB [Concomitant]
  4. RITALIN [Concomitant]
  5. PAXIL [Concomitant]
  6. LAMICTAL [Concomitant]
  7. MULTI-VITAMIN [Concomitant]
  8. ANTI-EPILEPTIC MEDICATION [Concomitant]
  9. ANXIOLYTIC [Concomitant]

REACTIONS (2)
  - MEDICAL DEVICE COMPLICATION [None]
  - PHARMACEUTICAL PRODUCT COMPLAINT [None]
